FAERS Safety Report 15946078 (Version 4)
Quarter: 2019Q2

REPORT INFORMATION
  Report Type: Report from Study
  Country: JP (occurrence: JP)
  Receive Date: 20190211
  Receipt Date: 20190605
  Transmission Date: 20190711
  Serious: Yes (Death, Life-Threatening, Other)
  Sender: FDA-Public Use
  Company Number: JP-BRISTOL-MYERS SQUIBB COMPANY-BMS-2015-087878

PATIENT
  Age: 93 Year
  Sex: Female
  Weight: 37 kg

DRUGS (1)
  1. NIVOLUMAB [Suspect]
     Active Substance: NIVOLUMAB
     Indication: MALIGNANT MELANOMA
     Dosage: 2 MG/KG, UNK
     Route: 041
     Dates: start: 20150730, end: 20151210

REACTIONS (7)
  - Altered state of consciousness [Fatal]
  - Blood sodium decreased [Recovered/Resolved]
  - Colitis [Recovering/Resolving]
  - Pyrexia [Recovering/Resolving]
  - Hypothyroidism [Not Recovered/Not Resolved]
  - Vomiting [Recovering/Resolving]
  - Diarrhoea [Recovered/Resolved]

NARRATIVE: CASE EVENT DATE: 20150910
